FAERS Safety Report 17549037 (Version 3)
Quarter: 2020Q2

REPORT INFORMATION
  Report Type: Spontaneous
  Country: US (occurrence: US)
  Receive Date: 20200317
  Receipt Date: 20200408
  Transmission Date: 20200713
  Serious: No
  Sender: FDA-Public Use
  Company Number: US-GLAXOSMITHKLINE-US2020AMR042688

PATIENT
  Age: 62 Year
  Sex: Female

DRUGS (3)
  1. ZEJULA [Suspect]
     Active Substance: NIRAPARIB
     Dosage: 300 MG, DAILY
     Dates: start: 20200304, end: 20200310
  2. ADVIL [Concomitant]
     Active Substance: IBUPROFEN
     Indication: PRODUCT USED FOR UNKNOWN INDICATION
     Dosage: UNK
  3. ZEJULA [Suspect]
     Active Substance: NIRAPARIB
     Indication: PRODUCT USED FOR UNKNOWN INDICATION
     Dosage: 300 MG, QD
     Route: 048
     Dates: start: 20200220

REACTIONS (12)
  - Nasopharyngitis [Unknown]
  - Liver disorder [Unknown]
  - Feeling abnormal [Unknown]
  - Vomiting [Unknown]
  - Pyrexia [Recovered/Resolved]
  - Cough [Unknown]
  - Blood bilirubin increased [Recovered/Resolved]
  - Disturbance in attention [Unknown]
  - Dizziness [Unknown]
  - Nausea [Not Recovered/Not Resolved]
  - Myalgia [Unknown]
  - Parosmia [Unknown]

NARRATIVE: CASE EVENT DATE: 202001
